FAERS Safety Report 15706557 (Version 1)
Quarter: 2018Q4

REPORT INFORMATION
  Report Type: Spontaneous
  Country: IL (occurrence: PT)
  Receive Date: 20181210
  Receipt Date: 20181210
  Transmission Date: 20190205
  Serious: Yes (Death, Other)
  Sender: FDA-Public Use
  Company Number: IL-LEADIANT BIOSCIENCES INC-2018STPI000658

PATIENT
  Age: 56 Year
  Sex: Female

DRUGS (25)
  1. ACETYLSALICYLIC ACID [Concomitant]
     Active Substance: ASPIRIN
     Dosage: 75 MG, UNK
     Route: 048
  2. CASSIA ACUTIFOLIA [Concomitant]
     Dosage: 30 MG, QD
  3. SODIUM CHLORIDE. [Concomitant]
     Active Substance: SODIUM CHLORIDE
     Dosage: 20 ML, UNK
  4. NOREPINEPHRINE. [Concomitant]
     Active Substance: NOREPINEPHRINE
  5. HYDROCORTISONE. [Concomitant]
     Active Substance: HYDROCORTISONE
     Dosage: 200 MG, UNK
     Route: 042
  6. CHLORHEXIDINE [Concomitant]
     Active Substance: CHLORHEXIDINE
     Dosage: 4 DOSAGE FORMS, QD
  7. SERTRALINE [Concomitant]
     Active Substance: SERTRALINE HYDROCHLORIDE
     Dosage: 100 MG, QD
  8. ABELCET [Suspect]
     Active Substance: AMPHOTERICIN B\DIMYRISTOYLPHOSPHATIDYLCHOLINE, DL-\DIMYRISTOYLPHOSPHATIDYLGLYCEROL, DL-
     Indication: CANDIDA INFECTION
     Dosage: 470 MG, UNK
     Route: 042
     Dates: start: 20171022
  9. CASPOFUNGIN [Concomitant]
     Active Substance: CASPOFUNGIN
     Dosage: 35 MG, QD
     Route: 042
  10. FUROSEMIDE. [Concomitant]
     Active Substance: FUROSEMIDE
  11. SALBUTAMOL [Concomitant]
     Active Substance: ALBUTEROL
     Dosage: 20 MG, UNK
  12. MILRINONE [Concomitant]
     Active Substance: MILRINONE
  13. FENTANYL. [Concomitant]
     Active Substance: FENTANYL
  14. PANTOPRAZOLE [Concomitant]
     Active Substance: PANTOPRAZOLE
  15. HUMAN ACTRAPID [Concomitant]
     Active Substance: INSULIN HUMAN
  16. MEROPENEM. [Concomitant]
     Active Substance: MEROPENEM
     Dosage: 200 MG, QD
  17. PREGABALIN. [Concomitant]
     Active Substance: PREGABALIN
     Dosage: 200 MG, UNK
  18. METOCLOPRAMIDE. [Concomitant]
     Active Substance: METOCLOPRAMIDE
     Dosage: 30 MG, UNK
     Route: 042
  19. ADCAL D3 [Concomitant]
     Active Substance: CALCIUM CARBONATE\CHOLECALCIFEROL
     Dosage: 1 DOSAGE, QD
  20. PARACETAMOL [Concomitant]
     Active Substance: ACETAMINOPHEN
     Dosage: 4 GRAM, UNK
     Route: 048
  21. ERYTHROMYCIN. [Concomitant]
     Active Substance: ERYTHROMYCIN
     Dosage: 500 MG, UNK
     Route: 042
  22. DAPTOMYCIN. [Concomitant]
     Active Substance: DAPTOMYCIN
     Dosage: 800 MG, UNK
     Route: 042
  23. DOCUSATE SODIUM. [Concomitant]
     Active Substance: DOCUSATE SODIUM
     Dosage: 400 MG, UNK
     Route: 048
  24. HEPARIN [Concomitant]
     Active Substance: HEPARIN SODIUM
  25. CHLORAMPHENICOL [Concomitant]
     Active Substance: CHLORAMPHENICOL
     Dosage: 4 DOSAGES FORMS, QD

REACTIONS (4)
  - Hypertension [Fatal]
  - Cardiac arrest [Fatal]
  - Unresponsive to stimuli [Fatal]
  - Hyperkalaemia [Fatal]

NARRATIVE: CASE EVENT DATE: 20181125
